FAERS Safety Report 16769785 (Version 2)
Quarter: 2019Q3

REPORT INFORMATION
  Report Type: Spontaneous
  Country: IT (occurrence: IT)
  Receive Date: 20190904
  Receipt Date: 20190926
  Transmission Date: 20191005
  Serious: Yes (Life-Threatening, Other)
  Sender: FDA-Public Use
  Company Number: IT-AUROBINDO-AUR-APL-2019-057356

PATIENT
  Age: 83 Year
  Sex: Male

DRUGS (3)
  1. TICLOPIDINE [Suspect]
     Active Substance: TICLOPIDINE
     Indication: CEREBROVASCULAR DISORDER
     Dosage: 250 MILLIGRAM, DAILY
     Route: 048
     Dates: start: 20040101
  2. REMINYL [Suspect]
     Active Substance: GALANTAMINE
     Indication: VASCULAR DEMENTIA
     Dosage: 8 MILLIGRAM, DAILY
     Route: 048
     Dates: start: 20070101
  3. ALPRAZOLAM. [Suspect]
     Active Substance: ALPRAZOLAM
     Indication: DEMENTIA
     Dosage: 10 GTT DROPS, DAILY
     Route: 048
     Dates: start: 20070101

REACTIONS (4)
  - Thrombocytopenia [Recovered/Resolved]
  - Product use in unapproved indication [Unknown]
  - Coombs negative haemolytic anaemia [Recovered/Resolved]
  - Off label use [Unknown]

NARRATIVE: CASE EVENT DATE: 20070101
